FAERS Safety Report 7104971-4 (Version None)
Quarter: 2010Q4

REPORT INFORMATION
  Report Type: 
  Country: None (occurrence: None)
  Receive Date: 20101109
  Receipt Date: 20101029
  Transmission Date: 20110411
  Serious: Yes (Hospitalization)
  Sender: FDA-Public Use
  Company Number: 021442

PATIENT
  Age: 1 Month
  Sex: Male

DRUGS (3)
  1. KEPPRA [Suspect]
     Indication: CONVULSION
     Dosage: (70 MG ORAL0
     Route: 048
     Dates: start: 20100402, end: 20100429
  2. LUMINAL /00023201/ [Concomitant]
  3. MOSAPRIDE [Concomitant]

REACTIONS (2)
  - BLOOD CREATININE INCREASED [None]
  - C-REACTIVE PROTEIN INCREASED [None]
